FAERS Safety Report 7595305-X (Version None)
Quarter: 2011Q3

REPORT INFORMATION
  Report Type: 
  Country: None (occurrence: None)
  Receive Date: 20110707
  Receipt Date: 20110628
  Transmission Date: 20111222
  Serious: Yes (Hospitalization)
  Sender: FDA-Public Use
  Company Number: FR-KINGPHARMUSA00001-K201100774

PATIENT
  Sex: Male

DRUGS (7)
  1. MAGNESIUM [Suspect]
     Indication: PAIN IN EXTREMITY
     Dosage: 300 MG, QD
     Route: 048
     Dates: end: 20110520
  2. ZOPICLONE [Concomitant]
  3. WARFARIN SODIUM [Concomitant]
  4. BUMETANIDE [Concomitant]
  5. ALTACE [Suspect]
     Dosage: 1.25 MG, BID
     Route: 048
     Dates: end: 20110520
  6. VITAMIN B-12 [Concomitant]
  7. ACETAMINOPHEN [Concomitant]

REACTIONS (8)
  - DIARRHOEA [None]
  - NAUSEA [None]
  - DECREASED APPETITE [None]
  - WEIGHT DECREASED [None]
  - FATIGUE [None]
  - MALAISE [None]
  - ASTHENIA [None]
  - HYPOTENSION [None]
